FAERS Safety Report 22146245 (Version 1)
Quarter: 2023Q1

REPORT INFORMATION
  Report Type: Spontaneous
  Country: JO (occurrence: JO)
  Receive Date: 20230328
  Receipt Date: 20230328
  Transmission Date: 20230418
  Serious: Yes (Life-Threatening)
  Sender: FDA-Public Use
  Company Number: JO-002147023-NVSC2023JO038376

PATIENT
  Age: 6 Year
  Sex: Male
  Weight: 15 kg

DRUGS (6)
  1. TEGRETOL [Suspect]
     Active Substance: CARBAMAZEPINE
     Indication: Epilepsy
     Dosage: 3 MG, TID
     Route: 048
     Dates: start: 20190103, end: 20190703
  2. TEGRETOL [Suspect]
     Active Substance: CARBAMAZEPINE
     Dosage: 3 MG, TID
     Route: 048
     Dates: start: 20190706, end: 20190817
  3. PYRIDOXINE HYDROCHLORIDE [Concomitant]
     Active Substance: PYRIDOXINE HYDROCHLORIDE
     Indication: Product used for unknown indication
     Dosage: 1 DOSAGE FORM, BID
     Route: 065
     Dates: start: 20200301
  4. PYRIDOXINE HYDROCHLORIDE [Concomitant]
     Active Substance: PYRIDOXINE HYDROCHLORIDE
     Dosage: UNK, QD (100 DAILY FOR ONE YEAR THEN STOPPED)
     Route: 065
  5. IRONA [Concomitant]
     Indication: Product used for unknown indication
     Dosage: UNK (50MG, 5ML/DAY) (IRONA FE )
     Route: 065
     Dates: start: 20190908, end: 20191230
  6. IRONA [Concomitant]
     Dosage: 10 ML, QD ((IRONA FE) (2 MONTH AFTER THE TEST FERRITIN WHICH WAS IN NORMAL)
     Route: 065
     Dates: start: 20191230

REACTIONS (2)
  - Anaemia [Not Recovered/Not Resolved]
  - Fatigue [Unknown]

NARRATIVE: CASE EVENT DATE: 20190706
